FAERS Safety Report 5276354-3 (Version None)
Quarter: 2007Q1

REPORT INFORMATION
  Report Type: 
  Country: None (occurrence: None)
  Receive Date: 20070326
  Receipt Date: 20070314
  Transmission Date: 20070707
  Serious: Yes (Other)
  Sender: FDA-Public Use
  Company Number: US-PFIZER INC-2007021473

PATIENT
  Sex: Female
  Weight: 66.7 kg

DRUGS (1)
  1. DEPO-SUBQ PROVERA 104 [Suspect]
     Indication: CONTRACEPTION
     Route: 058
     Dates: start: 20060101, end: 20060101

REACTIONS (2)
  - INJECTION SITE REACTION [None]
  - SMEAR CERVIX ABNORMAL [None]
